FAERS Safety Report 4775107-X (Version None)
Quarter: 2005Q3

REPORT INFORMATION
  Report Type: 
  Country: None (occurrence: None)
  Receive Date: 20050920
  Receipt Date: 20050907
  Transmission Date: 20060218
  Serious: Yes (Hospitalization)
  Sender: FDA-Public Use
  Company Number: 2005124858

PATIENT
  Age: 12 Year
  Sex: Male

DRUGS (1)
  1. ZITHROMAX [Suspect]
     Indication: CELLULITIS
     Dosage: ORAL
     Route: 048
     Dates: start: 20050817, end: 20050821

REACTIONS (4)
  - AGITATION [None]
  - CONFUSIONAL STATE [None]
  - INSOMNIA [None]
  - MANIA [None]
